FAERS Safety Report 11590332 (Version 3)
Quarter: 2016Q1

REPORT INFORMATION
  Report Type: Report from Study
  Country: FR (occurrence: FR)
  Receive Date: 20151002
  Receipt Date: 20160120
  Transmission Date: 20160525
  Serious: Yes (Hospitalization, Other)
  Sender: FDA-Public Use
  Company Number: FR-ELI_LILLY_AND_COMPANY-FR201507009768

PATIENT
  Age: 62 Year
  Sex: Male
  Weight: 126 kg

DRUGS (11)
  1. AUGMENTIN [Concomitant]
     Active Substance: AMOXICILLIN\CLAVULANATE POTASSIUM
     Indication: PYREXIA
     Dosage: 1 G, UNK
     Route: 048
     Dates: start: 20150602
  2. XELEVIA [Concomitant]
     Active Substance: SITAGLIPTIN PHOSPHATE
     Indication: TYPE 2 DIABETES MELLITUS
     Route: 048
  3. LOXEN                              /00639802/ [Concomitant]
     Active Substance: NICARDIPINE
     Indication: HYPERTENSION
     Route: 048
  4. SPASFON-LYOC [Concomitant]
     Active Substance: PHLOROGLUCINOL
     Indication: PAIN PROPHYLAXIS
     Dosage: UNK
     Route: 048
     Dates: start: 20150616
  5. METFORMIN [Concomitant]
     Active Substance: METFORMIN HYDROCHLORIDE
     Indication: TYPE 2 DIABETES MELLITUS
     Dosage: 1000 MG, UNK
     Route: 048
  6. ESBERIVEN                          /06623601/ [Concomitant]
     Indication: OEDEMA PERIPHERAL
     Dosage: UNK
     Route: 048
  7. EUPANTOL [Concomitant]
     Active Substance: PANTOPRAZOLE SODIUM
     Indication: DUODENAL ULCER PERFORATION
     Dosage: 40 MG, UNK
     Route: 048
     Dates: start: 20150625
  8. GEMCITABINE HYDROCHLORIDE. [Suspect]
     Active Substance: GEMCITABINE HYDROCHLORIDE
     Indication: NEOPLASM MALIGNANT
     Dosage: UNK, ONCE WEEKLY (FOR 2 CONSECUTIVE WEEKS IN 21 DAYS PERIOD)
     Route: 042
     Dates: start: 20150512, end: 20150706
  9. DIAMICRON [Concomitant]
     Active Substance: GLICLAZIDE
     Indication: TYPE 2 DIABETES MELLITUS
     Dosage: 150 MG, UNK
     Route: 048
  10. ATARAX [Concomitant]
     Active Substance: HYDROXYZINE\HYDROXYZINE HYDROCHLORIDE
     Indication: ANXIETY
     Dosage: 25 MG, UNK
     Route: 048
  11. BILASKA [Concomitant]
     Active Substance: BILASTINE
     Indication: HYPERSENSITIVITY
     Dosage: 20 MG, UNK
     Route: 048

REACTIONS (6)
  - Neutropenia [Recovered/Resolved]
  - Pancreatitis acute [Unknown]
  - Sepsis [Unknown]
  - Infection [Recovered/Resolved]
  - Renal failure [Recovered/Resolved]
  - Lipase increased [Recovered/Resolved]

NARRATIVE: CASE EVENT DATE: 20150709
